FAERS Safety Report 13739200 (Version 1)
Quarter: 2017Q3

REPORT INFORMATION
  Report Type: Spontaneous
  Country: US (occurrence: US)
  Receive Date: 20170710
  Receipt Date: 20170710
  Transmission Date: 20171127
  Serious: No
  Sender: FDA-Public Use
  Company Number: US-SAOL THERAPEUTICS-2017SAO01031

PATIENT
  Age: 40 Year
  Sex: Male
  Weight: 80.73 kg

DRUGS (6)
  1. BACLOFEN. [Suspect]
     Active Substance: BACLOFEN
     Indication: MUSCLE SPASTICITY
     Dosage: 733 ?G, \DAY
     Route: 037
     Dates: start: 20170120
  2. UNIDENTIFIED INTRATHECAL PAIN MEDICATION [Suspect]
     Active Substance: UNSPECIFIED INGREDIENT
     Route: 037
  3. BISACODYL. [Concomitant]
     Active Substance: BISACODYL
  4. COUMADIN [Concomitant]
     Active Substance: WARFARIN SODIUM
  5. LYRICA [Concomitant]
     Active Substance: PREGABALIN
  6. CYMBALTA [Concomitant]
     Active Substance: DULOXETINE HYDROCHLORIDE

REACTIONS (7)
  - Implant site pain [Unknown]
  - Device issue [None]
  - Contusion [Unknown]
  - Implant site bruising [None]
  - Muscle spasticity [Unknown]
  - Musculoskeletal stiffness [Unknown]
  - Device alarm issue [Unknown]

NARRATIVE: CASE EVENT DATE: 20170609
